FAERS Safety Report 4666576-4 (Version None)
Quarter: 2005Q2

REPORT INFORMATION
  Report Type: 
  Country: None (occurrence: None)
  Receive Date: 20050517
  Receipt Date: 20050429
  Transmission Date: 20051028
  Serious: Yes (Hospitalization, Disabling, Other)
  Sender: FDA-Public Use
  Company Number: USA050495341

PATIENT
  Age: 31 Year
  Sex: Male

DRUGS (3)
  1. HUMALOG [Suspect]
     Indication: DIABETES MELLITUS
  2. HUMULIN N [Suspect]
     Indication: DIABETES MELLITUS
  3. HUMULIN U [Suspect]

REACTIONS (24)
  - AGGRESSION [None]
  - BLOOD GLUCOSE INCREASED [None]
  - CARDIAC FAILURE [None]
  - CARDIOVASCULAR DISORDER [None]
  - CHOKING [None]
  - COLLAPSE OF LUNG [None]
  - DEPRESSION [None]
  - DIABETES MELLITUS INSULIN-DEPENDENT [None]
  - DISTURBANCE IN ATTENTION [None]
  - DRUG INEFFECTIVE [None]
  - DYSPHAGIA [None]
  - FOREIGN BODY TRAUMA [None]
  - GLYCOSYLATED HAEMOGLOBIN INCREASED [None]
  - INCORRECT DOSE ADMINISTERED [None]
  - LUNG INJURY [None]
  - MEMORY IMPAIRMENT [None]
  - MENTAL DISORDER [None]
  - MOTOR DYSFUNCTION [None]
  - NEUROPATHY [None]
  - PHARMACEUTICAL PRODUCT COMPLAINT [None]
  - SHOCK HYPOGLYCAEMIC [None]
  - SUICIDAL IDEATION [None]
  - THERAPY NON-RESPONDER [None]
  - TRACHEAL DISORDER [None]
